FAERS Safety Report 15430748 (Version 2)
Quarter: 2018Q4

REPORT INFORMATION
  Report Type: Spontaneous
  Country: JP (occurrence: JP)
  Receive Date: 20180926
  Receipt Date: 20181019
  Transmission Date: 20190204
  Serious: Yes (Hospitalization)
  Sender: FDA-Public Use
  Company Number: JP-009507513-1809JPN010061

PATIENT
  Age: 68 Year
  Sex: Male

DRUGS (10)
  1. OPDIVO [Suspect]
     Active Substance: NIVOLUMAB
     Dosage: 168 MG, QD, 2ND CYCLE TO 6TH CYCLE
     Route: 041
     Dates: start: 20161201, end: 20170207
  2. PREDONINE [Concomitant]
     Active Substance: PREDNISOLONE
  3. HUMALOG [Concomitant]
     Active Substance: INSULIN LISPRO
  4. OPDIVO [Suspect]
     Active Substance: NIVOLUMAB
     Indication: NON-SMALL CELL LUNG CANCER RECURRENT
     Dosage: 157.5 MG, 1ST CYCLE
     Route: 041
     Dates: start: 20161117, end: 20161117
  5. ALENDRONATE SODIUM. [Concomitant]
     Active Substance: ALENDRONATE SODIUM
  6. SAMTIREL [Concomitant]
     Active Substance: ATOVAQUONE
  7. SODIUM CHLORIDE. [Concomitant]
     Active Substance: SODIUM CHLORIDE
  8. SITAGLIPTIN PHOSPHATE [Suspect]
     Active Substance: SITAGLIPTIN PHOSPHATE
     Indication: TYPE 2 DIABETES MELLITUS
     Dosage: UNK
     Route: 048
  9. HIRNAMIN (LEVOMEPROMAZINE MALEATE) [Concomitant]
     Active Substance: LEVOMEPROMAZINE MALEATE
  10. NEXIUM [Concomitant]
     Active Substance: ESOMEPRAZOLE MAGNESIUM

REACTIONS (1)
  - Pneumonia [Recovered/Resolved]

NARRATIVE: CASE EVENT DATE: 20170425
